FAERS Safety Report 9218862 (Version 1)
Quarter: 2013Q2

REPORT INFORMATION
  Report Type: Spontaneous
  Country: FR (occurrence: FR)
  Receive Date: 20130409
  Receipt Date: 20130409
  Transmission Date: 20140414
  Serious: Yes (Hospitalization)
  Sender: FDA-Public Use
  Company Number: FR-JNJFOC-20130401024

PATIENT
  Age: 55 Year
  Sex: Male

DRUGS (8)
  1. PREZISTA [Suspect]
     Indication: HIV INFECTION
     Route: 048
     Dates: start: 20100521, end: 20130204
  2. PREZISTA [Suspect]
     Indication: HIV INFECTION
     Route: 048
     Dates: start: 20130207
  3. REYATAZ [Suspect]
     Indication: HIV INFECTION
     Route: 048
     Dates: start: 20101130, end: 20130204
  4. REYATAZ [Suspect]
     Indication: HIV INFECTION
     Route: 048
     Dates: start: 20100609, end: 20101130
  5. NORVIR [Suspect]
     Indication: HIV INFECTION
     Route: 048
     Dates: start: 20130207
  6. NORVIR [Suspect]
     Indication: HIV INFECTION
     Route: 048
     Dates: start: 20100420, end: 20130204
  7. IUVACOR [Concomitant]
     Route: 065
     Dates: start: 201110
  8. TRAMADOL [Concomitant]
     Route: 065
     Dates: start: 201210

REACTIONS (2)
  - Nephrolithiasis [Recovered/Resolved]
  - Renal colic [Recovered/Resolved]
